FAERS Safety Report 4830338-5 (Version None)
Quarter: 2005Q4

REPORT INFORMATION
  Report Type: 
  Country: None (occurrence: None)
  Receive Date: 20051114
  Receipt Date: 20051028
  Transmission Date: 20060501
  Serious: Yes (Hospitalization, Disabling, Other)
  Sender: FDA-Public Use
  Company Number: USA-2002-0003100

PATIENT
  Age: 37 Year
  Sex: Female
  Weight: 74.8 kg

DRUGS (15)
  1. OXYCONTIN [Suspect]
     Indication: PAIN
     Dosage: SEE IMAGE
     Dates: start: 19990501
  2. ZOLOFT [Concomitant]
  3. LORTAB [Concomitant]
  4. XANAX [Concomitant]
  5. PREMARIN [Concomitant]
  6. ADVIL [Concomitant]
  7. ULTRAM [Concomitant]
  8. VALIUM [Concomitant]
  9. NEURONTIN [Concomitant]
  10. NORTRIPTYLINE HCL [Concomitant]
  11. PAXIL [Concomitant]
  12. AMERGE [Concomitant]
  13. PROVENTIL [Concomitant]
  14. METHADONE HCL [Concomitant]
  15. SOMA [Concomitant]

REACTIONS (116)
  - ABDOMINAL PAIN [None]
  - ABNORMAL BEHAVIOUR [None]
  - ALOPECIA [None]
  - AMNESIA [None]
  - ANALGESIC DRUG LEVEL DECREASED [None]
  - ANGER [None]
  - ANOREXIA [None]
  - ANOSMIA [None]
  - ANXIETY [None]
  - ARTHRALGIA [None]
  - ASTHENIA [None]
  - BACK PAIN [None]
  - BALANCE DISORDER [None]
  - BONE PAIN [None]
  - CHANGE OF BOWEL HABIT [None]
  - CHEST PAIN [None]
  - CHILLS [None]
  - CONSTIPATION [None]
  - COORDINATION ABNORMAL [None]
  - CRYING [None]
  - CYSTITIS [None]
  - DEFAECATION URGENCY [None]
  - DEHYDRATION [None]
  - DEPRESSION [None]
  - DIARRHOEA [None]
  - DIPLOPIA [None]
  - DISEASE RECURRENCE [None]
  - DISTURBANCE IN ATTENTION [None]
  - DIZZINESS [None]
  - DRUG ABUSER [None]
  - DRUG DEPENDENCE [None]
  - DRUG INEFFECTIVE [None]
  - DRUG TOLERANCE [None]
  - DRUG WITHDRAWAL SYNDROME [None]
  - DRY MOUTH [None]
  - DRY SKIN [None]
  - DYSGEUSIA [None]
  - DYSKINESIA [None]
  - DYSPAREUNIA [None]
  - DYSPNOEA [None]
  - DYSSTASIA [None]
  - DYSURIA [None]
  - EUPHORIC MOOD [None]
  - FACIAL PAIN [None]
  - FACIAL PALSY [None]
  - FAECAL INCONTINENCE [None]
  - FALL [None]
  - FATIGUE [None]
  - FEELING JITTERY [None]
  - GALLBLADDER DISORDER [None]
  - HAIR PLUCKING [None]
  - HALLUCINATION [None]
  - HALLUCINATION, VISUAL [None]
  - HEADACHE [None]
  - HYPERHIDROSIS [None]
  - HYPOAESTHESIA [None]
  - HYSTERECTOMY [None]
  - IMPAIRED HEALING [None]
  - INADEQUATE ANALGESIA [None]
  - INJURY [None]
  - INSOMNIA [None]
  - IRRITABILITY [None]
  - LACERATION [None]
  - LACRIMATION INCREASED [None]
  - LIBIDO DECREASED [None]
  - LUNG DISORDER [None]
  - MALAISE [None]
  - MALNUTRITION [None]
  - MEMORY IMPAIRMENT [None]
  - MENORRHAGIA [None]
  - MENTAL DISORDER [None]
  - MIOSIS [None]
  - MUSCLE SPASMS [None]
  - MUSCLE TWITCHING [None]
  - NAUSEA [None]
  - NECK PAIN [None]
  - NERVOUSNESS [None]
  - NIGHTMARE [None]
  - OBSESSIVE-COMPULSIVE DISORDER [None]
  - OESOPHAGEAL DISORDER [None]
  - ORAL FUNGAL INFECTION [None]
  - OTITIS MEDIA [None]
  - OVARIAN CYST [None]
  - PAIN IN EXTREMITY [None]
  - PARAESTHESIA [None]
  - PARALYSIS [None]
  - PARONYCHIA [None]
  - PELVIC PAIN [None]
  - PHARYNGITIS [None]
  - PHOTOPHOBIA [None]
  - POSTOPERATIVE ADHESION [None]
  - PRURITUS [None]
  - PULMONARY CONGESTION [None]
  - RENAL PAIN [None]
  - RHINORRHOEA [None]
  - SALIVARY HYPERSECRETION [None]
  - SOMNOLENCE [None]
  - STOMACH DISCOMFORT [None]
  - SURGERY [None]
  - SYNCOPE [None]
  - TACHYCARDIA [None]
  - THINKING ABNORMAL [None]
  - TINNITUS [None]
  - TONGUE DISCOLOURATION [None]
  - TONGUE DISORDER [None]
  - TREMOR [None]
  - URINARY INCONTINENCE [None]
  - URINARY RETENTION [None]
  - VIRAL INFECTION [None]
  - VISION BLURRED [None]
  - VOMITING [None]
  - VULVOVAGINAL DRYNESS [None]
  - WEIGHT DECREASED [None]
  - WHEEZING [None]
  - WOUND DEHISCENCE [None]
  - YAWNING [None]
